FAERS Safety Report 4930034-X (Version None)
Quarter: 2006Q1

REPORT INFORMATION
  Report Type: 
  Country: None (occurrence: None)
  Receive Date: 20060302
  Receipt Date: 20051202
  Transmission Date: 20060701
  Serious: Yes (Death, Hospitalization, Disabling)
  Sender: FDA-Public Use
  Company Number: PHBS2005JP17986

PATIENT
  Age: 63 Year
  Sex: Male
  Weight: 48 kg

DRUGS (10)
  1. DESFERAL [Suspect]
     Indication: HAEMOCHROMATOSIS
     Dosage: 500 MG X 2 DAYS/WK
     Route: 030
     Dates: start: 20051031, end: 20051201
  2. NEOPHAGEN [Concomitant]
     Dosage: 20 MG/D
     Route: 042
     Dates: start: 20010101
  3. LASIX [Concomitant]
     Dosage: 20 MG/D
     Route: 048
     Dates: start: 20050801
  4. DIGOXIN [Concomitant]
     Dosage: 0.125 MG/D
     Route: 048
     Dates: start: 20050801
  5. URSO [Concomitant]
     Dosage: 300 MG/D
     Route: 048
     Dates: start: 20010101
  6. ZANTAC [Concomitant]
     Dosage: 150 MG/D
     Route: 048
     Dates: start: 20010101
  7. ADONA [Concomitant]
     Dosage: 90 MG/D
     Route: 048
     Dates: start: 20010101
  8. PREDNISOLONE [Concomitant]
     Dosage: 3 MG/D
     Route: 048
     Dates: start: 20010101
  9. NOVOLIN N [Concomitant]
     Route: 042
     Dates: start: 20050225
  10. NEUTROGIN [Concomitant]
     Route: 058

REACTIONS (6)
  - BLINDNESS UNILATERAL [None]
  - C-REACTIVE PROTEIN INCREASED [None]
  - HEADACHE [None]
  - MULTI-ORGAN FAILURE [None]
  - SEPSIS [None]
  - VITH NERVE PARALYSIS [None]
